FAERS Safety Report 16368797 (Version 1)
Quarter: 2019Q2

REPORT INFORMATION
  Report Type: Spontaneous
  Country: FR (occurrence: FR)
  Receive Date: 20190529
  Receipt Date: 20190529
  Transmission Date: 20190711
  Serious: Yes (Other)
  Sender: FDA-Public Use
  Company Number: FR-PFIZER INC-2019222193

PATIENT
  Age: 27 Year
  Sex: Female
  Weight: 104 kg

DRUGS (17)
  1. ALPRAZOLAM. [Suspect]
     Active Substance: ALPRAZOLAM
     Indication: ANXIETY
     Dosage: 2 DF, 1X/DAY
     Route: 048
     Dates: start: 20190330, end: 20190408
  2. SMECTA [Concomitant]
     Active Substance: MONTMORILLONITE
     Dosage: UNK
  3. RACECADOTRIL [Concomitant]
     Active Substance: RACECADOTRIL
     Dosage: UNK
  4. ZARZIO [Concomitant]
     Active Substance: FILGRASTIM
     Dosage: UNK
  5. ONDANSETRON [Concomitant]
     Active Substance: ONDANSETRON
     Dosage: UNK
  6. VALACICLOVIR [Concomitant]
     Active Substance: VALACYCLOVIR HYDROCHLORIDE
     Dosage: UNK
  7. TRANXENE [Suspect]
     Active Substance: CLORAZEPATE DIPOTASSIUM
     Indication: ANXIETY
     Dosage: 2 DF, 1X/DAY
     Route: 048
     Dates: start: 20190327, end: 20190405
  8. PANTOPRAZOLE [Concomitant]
     Active Substance: PANTOPRAZOLE
     Dosage: UNK
  9. VFEND [Concomitant]
     Active Substance: VORICONAZOLE
     Dosage: UNK
  10. CELLCEPT [Concomitant]
     Active Substance: MYCOPHENOLATE MOFETIL\MYCOPHENOLATE MOFETIL HYDROCHLORIDE
     Dosage: UNK
  11. OXYNORM [Suspect]
     Active Substance: OXYCODONE HYDROCHLORIDE
     Indication: PAIN
     Dosage: UNK
     Route: 042
     Dates: start: 20190327, end: 20190408
  12. DAFLON [DIOSMIN;HESPERIDIN] [Concomitant]
     Dosage: UNK
  13. ULTRAPROCT [CHLORQUINALDOL;FLUOCORTOLONE PIVALATE;LIDOCAINE HYDROCHLOR [Concomitant]
     Dosage: UNK
  14. VANCOMYCINE [VANCOMYCIN] [Concomitant]
     Active Substance: VANCOMYCIN
     Dosage: UNK
  15. DIFICLIR [Concomitant]
     Active Substance: FIDAXOMICIN
     Dosage: UNK
  16. SANDIMMUN [Concomitant]
     Active Substance: CYCLOSPORINE
     Dosage: UNK
  17. MAGNE B6 [Concomitant]
     Active Substance: MAGNESIUM\PYRIDOXINE
     Dosage: UNK

REACTIONS (1)
  - Coma [Recovered/Resolved]

NARRATIVE: CASE EVENT DATE: 20190405
